FAERS Safety Report 4503026-2 (Version None)
Quarter: 2004Q4

REPORT INFORMATION
  Report Type: 
  Country: None (occurrence: None)
  Receive Date: 20041112
  Receipt Date: 20041103
  Transmission Date: 20050328
  Serious: Yes (Hospitalization)
  Sender: FDA-Public Use
  Company Number: UKP04000409

PATIENT
  Age: 52 Year
  Sex: Male

DRUGS (2)
  1. DANTRIUM [Suspect]
     Indication: MULTIPLE SCLEROSIS
     Dosage: 50 MG, 3/DAY, ORAL
     Route: 048
  2. BACLOFEN [Concomitant]

REACTIONS (1)
  - BILE DUCT OBSTRUCTION [None]
